FAERS Safety Report 5568925-1 (Version None)
Quarter: 2007Q4

REPORT INFORMATION
  Report Type: 
  Country: None (occurrence: None)
  Receive Date: 20071220
  Receipt Date: 20070322
  Transmission Date: 20080405
  Serious: No
  Sender: FDA-Public Use
  Company Number: A0644296A

PATIENT
  Age: 73 Year
  Sex: Male

DRUGS (8)
  1. AVODART [Suspect]
     Indication: NOCTURIA
     Dosage: 1CAP PER DAY
     Route: 048
     Dates: start: 20061102
  2. TOPROL-XL [Concomitant]
  3. ASPIRIN [Concomitant]
  4. LIPITOR [Concomitant]
  5. ACEON [Concomitant]
  6. IRON [Concomitant]
  7. GLIMEPIRIDE [Concomitant]
  8. ALPRAZOLAM [Concomitant]

REACTIONS (1)
  - DRUG INEFFECTIVE [None]
